FAERS Safety Report 5442041-1 (Version None)
Quarter: 2007Q3

REPORT INFORMATION
  Report Type: 
  Country: None (occurrence: None)
  Receive Date: 20070904
  Receipt Date: 20070827
  Transmission Date: 20080115
  Serious: Yes (Hospitalization)
  Sender: FDA-Public Use
  Company Number: FR-AVENTIS-200714087EU

PATIENT
  Age: 52 Year
  Sex: Male

DRUGS (6)
  1. FLUDEX                             /00340101/ [Suspect]
     Indication: DRUG USE FOR UNKNOWN INDICATION
     Dosage: DOSE: 1 DF
     Route: 048
     Dates: start: 20060901, end: 20070404
  2. COVERSYL                           /00790701/ [Suspect]
     Indication: DRUG USE FOR UNKNOWN INDICATION
     Route: 048
     Dates: start: 20060901, end: 20070405
  3. PLAVIX [Concomitant]
     Dosage: DOSE: UNK
     Dates: start: 20060901
  4. INIPOMP                            /01263201/ [Concomitant]
     Dosage: DOSE: UNK
     Dates: start: 20060901
  5. STILNOX                            /00914901/ [Concomitant]
     Dosage: DOSE: UNK
     Dates: start: 20060901
  6. CLONAZEPAM [Concomitant]
     Dosage: DOSE: UNK
     Dates: start: 20060901

REACTIONS (1)
  - RENAL FAILURE ACUTE [None]
